FAERS Safety Report 7916090-5 (Version None)
Quarter: 2011Q4

REPORT INFORMATION
  Report Type: 
  Country: None (occurrence: None)
  Receive Date: 20111116
  Receipt Date: 20111111
  Transmission Date: 20120403
  Serious: Yes (Death, Hospitalization)
  Sender: FDA-Public Use
  Company Number: GB-ROCHE-1011895

PATIENT
  Sex: Female
  Weight: 96 kg

DRUGS (5)
  1. NAVELBINE [Suspect]
     Route: 048
     Dates: start: 20090513
  2. NAVELBINE [Suspect]
     Route: 048
     Dates: start: 20090506
  3. AVASTIN [Suspect]
     Indication: BREAST CANCER METASTATIC
  4. NAVELBINE [Suspect]
     Indication: BREAST CANCER METASTATIC
     Route: 048
     Dates: start: 20090604
  5. NAVELBINE [Suspect]
     Route: 048
     Dates: start: 20090529

REACTIONS (2)
  - NEUTROPENIC SEPSIS [None]
  - DEATH [None]
